FAERS Safety Report 18259668 (Version 1)
Quarter: 2020Q3

REPORT INFORMATION
  Report Type: Report from Study
  Country: US (occurrence: US)
  Receive Date: 20200912
  Receipt Date: 20200912
  Transmission Date: 20201103
  Serious: Yes (Hospitalization)
  Sender: FDA-Public Use
  Company Number: US-TORRENT-00010398

PATIENT
  Age: 64 Year
  Sex: Female

DRUGS (2)
  1. LAMOTRIGINE. [Suspect]
     Active Substance: LAMOTRIGINE
     Indication: PARTIAL SEIZURES
     Dosage: 300 MG TWICE A DAY
  2. LEVETIRACETAM. [Concomitant]
     Active Substance: LEVETIRACETAM
     Indication: SEIZURE
     Dosage: 500 MG AT BEDTIME, EXTENDED?RELEASE

REACTIONS (6)
  - Diplopia [Unknown]
  - Balance disorder [Unknown]
  - Asthenia [Unknown]
  - Toxicity to various agents [Unknown]
  - Gait inability [Unknown]
  - Ataxia [Unknown]
